FAERS Safety Report 13928216 (Version 3)
Quarter: 2017Q3

REPORT INFORMATION
  Report Type: Report from Study
  Country: JP (occurrence: JP)
  Receive Date: 20170901
  Receipt Date: 20170927
  Transmission Date: 20171127
  Serious: Yes (Hospitalization)
  Sender: FDA-Public Use
  Company Number: JP-ACTELION-A-CH2017-158740

PATIENT
  Age: 67 Year
  Sex: Female

DRUGS (11)
  1. SLOW-K [Concomitant]
     Active Substance: POTASSIUM CHLORIDE
  2. NORVASC [Suspect]
     Active Substance: AMLODIPINE BESYLATE
     Indication: HYPERTENSION
     Dosage: 2.5 MG, QD
     Route: 048
     Dates: end: 20160725
  3. ADEMPAS [Concomitant]
     Active Substance: RIOCIGUAT
  4. NEXIUM [Concomitant]
     Active Substance: ESOMEPRAZOLE MAGNESIUM
  5. LAC-B [Concomitant]
     Active Substance: BIFIDOBACTERIUM SPP.
  6. OPSUMIT [Suspect]
     Active Substance: MACITENTAN
     Indication: PULMONARY ARTERIAL HYPERTENSION
     Dosage: 10 MG, QD
     Route: 048
     Dates: start: 20160722
  7. OXYGEN. [Concomitant]
     Active Substance: OXYGEN
  8. FEBURIC [Concomitant]
     Active Substance: FEBUXOSTAT
  9. GASTROM [Concomitant]
     Active Substance: ECABET SODIUM
  10. LASIX [Concomitant]
     Active Substance: FUROSEMIDE
  11. E KEPPRA [Concomitant]
     Active Substance: LEVETIRACETAM

REACTIONS (5)
  - Renal impairment [Not Recovered/Not Resolved]
  - Retinal haemorrhage [Recovering/Resolving]
  - Cardiac failure [Recovering/Resolving]
  - Oedema peripheral [Recovering/Resolving]
  - Blood pressure decreased [Recovered/Resolved]

NARRATIVE: CASE EVENT DATE: 20160723
